FAERS Safety Report 12370734 (Version 2)
Quarter: 2016Q2

REPORT INFORMATION
  Report Type: Spontaneous
  Country: TR (occurrence: TR)
  Receive Date: 20160516
  Receipt Date: 20160520
  Transmission Date: 20160815
  Serious: Yes (Other)
  Sender: FDA-Public Use
  Company Number: TR-009507513-1605TUR005807

PATIENT
  Sex: Male
  Weight: 82 kg

DRUGS (9)
  1. ZYVOXID [Concomitant]
     Active Substance: LINEZOLID
     Dosage: UNK
  2. NEURONTIN [Concomitant]
     Active Substance: GABAPENTIN
     Dosage: UNK
  3. METOPROLOL SUCCINATE. [Concomitant]
     Active Substance: METOPROLOL SUCCINATE
     Dosage: UNK
  4. DAPTOMYCIN. [Suspect]
     Active Substance: DAPTOMYCIN
     Indication: INTERVERTEBRAL DISCITIS
     Dosage: 5MG/KG/DAY
     Route: 065
     Dates: start: 20120507
  5. INSULIN [Concomitant]
     Active Substance: INSULIN NOS
     Dosage: UNK
  6. DIPYRIDAMOLE. [Concomitant]
     Active Substance: DIPYRIDAMOLE
     Dosage: UNK
  7. ROXATIDINE ACETATE [Concomitant]
     Active Substance: ROXATIDINE ACETATE
     Dosage: UNK
  8. TIENAM 500 MG IV ENJEKTABL FLAKON [Concomitant]
     Active Substance: CILASTATIN SODIUM\IMIPENEM
     Dosage: UNK
  9. IMIPENEM [Concomitant]
     Active Substance: IMIPENEM
     Dosage: UNK

REACTIONS (1)
  - Respiratory distress [Recovering/Resolving]
